FAERS Safety Report 22339952 (Version 1)
Quarter: 2023Q2

REPORT INFORMATION
  Report Type: Report from Study
  Country: US (occurrence: US)
  Receive Date: 20230518
  Receipt Date: 20230518
  Transmission Date: 20230722
  Serious: Yes (Other)
  Sender: FDA-Public Use
  Company Number: US-ABBVIE-4770711

PATIENT
  Age: 66 Year
  Sex: Male

DRUGS (1)
  1. SKYRIZI [Suspect]
     Active Substance: RISANKIZUMAB-RZAA
     Indication: Psoriasis
     Route: 058
     Dates: start: 20191126

REACTIONS (4)
  - Pericardial effusion [Recovering/Resolving]
  - Chronic obstructive pulmonary disease [Unknown]
  - Coronary artery bypass [Recovering/Resolving]
  - Precancerous condition [Recovering/Resolving]

NARRATIVE: CASE EVENT DATE: 20210916
